FAERS Safety Report 4497314-6 (Version None)
Quarter: 2004Q3

REPORT INFORMATION
  Report Type: 
  Country: None (occurrence: None)
  Receive Date: 20040927
  Receipt Date: 20040722
  Transmission Date: 20050211
  Serious: No
  Sender: FDA-Public Use
  Company Number: USA040773450

PATIENT
  Sex: Female

DRUGS (6)
  1. STRATTERA [Suspect]
     Indication: ATTENTION DEFICIT/HYPERACTIVITY DISORDER
     Dosage: 40 MG DAY
     Dates: start: 20040721
  2. PROZAC [Suspect]
     Indication: DYSTHYMIC DISORDER
     Dosage: 20 MG DAY
     Dates: end: 19970101
  3. PAXIL [Concomitant]
  4. RESTORIL [Concomitant]
  5. BENADRYL [Concomitant]
  6. ADVIL [Concomitant]

REACTIONS (5)
  - ANXIETY [None]
  - DECREASED APPETITE [None]
  - FLUSHING [None]
  - HEART RATE INCREASED [None]
  - IRRITABILITY [None]
